FAERS Safety Report 13800896 (Version 1)
Quarter: 2017Q3

REPORT INFORMATION
  Report Type: Spontaneous
  Country: US (occurrence: TW)
  Receive Date: 20170727
  Receipt Date: 20170727
  Transmission Date: 20171127
  Serious: Yes (Hospitalization)
  Sender: FDA-Public Use
  Company Number: US-PFIZER INC-746417

PATIENT
  Age: 77 Year
  Sex: Male

DRUGS (9)
  1. CYTARABINE. [Suspect]
     Active Substance: CYTARABINE
     Dosage: 36.4 MG, 1 IN 1 DAY
     Route: 058
     Dates: start: 20080421
  2. METOCLOPRAMIDE. [Concomitant]
     Active Substance: METOCLOPRAMIDE
     Indication: PROPHYLAXIS OF NAUSEA AND VOMITING
     Dosage: 5 MG, 3 IN 1 DAY
     Route: 048
     Dates: start: 20080524
  3. CYTARABINE. [Suspect]
     Active Substance: CYTARABINE
     Indication: ACUTE MYELOID LEUKAEMIA
     Dosage: 37 MG, 1 IN 1 DAY
     Route: 058
     Dates: start: 20080520
  4. CYTARABINE. [Suspect]
     Active Substance: CYTARABINE
     Indication: ACUTE MYELOID LEUKAEMIA
     Dosage: 37 MG, 1 IN 1 DAY
     Route: 058
     Dates: start: 20080520
  5. CIMETIDINE [Concomitant]
     Active Substance: CIMETIDINE
     Indication: PROPHYLAXIS
     Dosage: 400 MG, 1 IN 1 DAY
     Route: 048
     Dates: start: 20080519
  6. CYTARABINE. [Suspect]
     Active Substance: CYTARABINE
     Dosage: 36.4 MG, 1 IN 1 DAY
     Route: 058
     Dates: start: 20080421, end: 20130430
  7. DEXAMETHASONE. [Concomitant]
     Active Substance: DEXAMETHASONE
     Indication: MUCOSITIS MANAGEMENT
     Dosage: 5 MG, 2 IN 1 DAY
     Route: 061
     Dates: start: 20080524
  8. RAMIPRIL. [Concomitant]
     Active Substance: RAMIPRIL
     Indication: HYPERTENSION
     Dosage: 10 MG, 1 IN 1 DAY
     Route: 048
     Dates: start: 20080519
  9. SIMETHICONE (DIMETHICONE) [Concomitant]
     Active Substance: DIMETHICONE
     Indication: ABDOMINAL DISTENSION
     Dosage: 80 MG, 3 IN 1 DAY
     Route: 048
     Dates: start: 20080524

REACTIONS (7)
  - Vomiting [Recovered/Resolved]
  - Abdominal distension [Recovered/Resolved]
  - Febrile neutropenia [Recovered/Resolved]
  - Upper gastrointestinal haemorrhage [Recovered/Resolved]
  - Nausea [Recovered/Resolved]
  - Asthenia [Recovered/Resolved]
  - Dizziness [Recovered/Resolved]

NARRATIVE: CASE EVENT DATE: 20080531
